FAERS Safety Report 18695477 (Version 2)
Quarter: 2021Q1

REPORT INFORMATION
  Report Type: Report from Study
  Country: CA (occurrence: CA)
  Receive Date: 20210104
  Receipt Date: 20210201
  Transmission Date: 20210419
  Serious: No
  Sender: FDA-Public Use
  Company Number: CA-KARYOPHARM-2020KPT001347

PATIENT
  Age: 60 Year
  Sex: Female

DRUGS (1)
  1. SELINEXOR [Suspect]
     Active Substance: SELINEXOR
     Indication: PLASMA CELL MYELOMA
     Dosage: UNK
     Dates: start: 20200303, end: 20200826

REACTIONS (3)
  - Fatigue [Unknown]
  - Plasma cell myeloma [Unknown]
  - Nausea [Unknown]

NARRATIVE: CASE EVENT DATE: 2020
